FAERS Safety Report 5024516-2 (Version None)
Quarter: 2006Q2

REPORT INFORMATION
  Report Type: 
  Country: None (occurrence: None)
  Receive Date: 20060613
  Receipt Date: 20051109
  Transmission Date: 20061013
  Serious: Yes (Other)
  Sender: FDA-Public Use
  Company Number: PHEH2005US12388

PATIENT
  Age: 65 Year
  Sex: Female
  Weight: 64.852 kg

DRUGS (5)
  1. ZELNORM [Suspect]
     Indication: CONSTIPATION
     Dosage: 6 MG, QD
     Route: 048
     Dates: start: 20060501
  2. ZELNORM [Suspect]
     Dosage: UNK, QOD
     Route: 048
     Dates: start: 20050501
  3. ACIPHEX [Concomitant]
     Indication: REFLUX OESOPHAGITIS
  4. SYNTHROID [Concomitant]
     Indication: ANTI-THYROID ANTIBODY
     Dosage: 0.1 MG, QD
     Route: 048
     Dates: start: 19900615
  5. CITRACAL [Concomitant]

REACTIONS (6)
  - ABDOMINAL DISCOMFORT [None]
  - ABDOMINAL DISTENSION [None]
  - ASTHENIA [None]
  - DIARRHOEA [None]
  - DIZZINESS [None]
  - ELECTROLYTE IMBALANCE [None]
